FAERS Safety Report 6202407-9 (Version None)
Quarter: 2009Q2

REPORT INFORMATION
  Report Type: 
  Country: None (occurrence: None)
  Receive Date: 20090526
  Receipt Date: 20090515
  Transmission Date: 20091009
  Serious: Yes (Hospitalization)
  Sender: FDA-Public Use
  Company Number: IE-ELI_LILLY_AND_COMPANY-IE200905002114

PATIENT
  Sex: Female

DRUGS (5)
  1. ZYPREXA [Suspect]
     Indication: SCHIZOPHRENIA
     Dosage: 2.5 MG, UNK
  2. ZYPREXA [Suspect]
     Dosage: 5 MG, UNK
  3. ZYPREXA [Suspect]
     Dosage: 7.5 MG, UNK
  4. ZYPREXA [Suspect]
     Dosage: 27.5 MG, DAILY (1/D)
     Dates: start: 20081001
  5. DESOGESTREL AND ETHINYL ESTRADIOL [Concomitant]

REACTIONS (7)
  - FEAR [None]
  - MENTAL DISORDER [None]
  - MUSCULOSKELETAL STIFFNESS [None]
  - OVERDOSE [None]
  - PSYCHIATRIC SYMPTOM [None]
  - SCHIZOPHRENIA [None]
  - WEIGHT INCREASED [None]
